FAERS Safety Report 7364342-2 (Version None)
Quarter: 2011Q1

REPORT INFORMATION
  Report Type: 
  Country: None (occurrence: None)
  Receive Date: 20110321
  Receipt Date: 20101213
  Transmission Date: 20110831
  Serious: No
  Sender: FDA-Public Use
  Company Number: US-ALLERGAN-1016118US

PATIENT
  Sex: Male

DRUGS (1)
  1. ZYMAXID [Suspect]
     Indication: PRODUCT USED FOR UNKNOWN INDICATION

REACTIONS (4)
  - HEADACHE [None]
  - HYPERSENSITIVITY [None]
  - DIARRHOEA [None]
  - SOMNOLENCE [None]
